FAERS Safety Report 19991294 (Version 1)
Quarter: 2021Q4

REPORT INFORMATION
  Report Type: Spontaneous
  Country: US (occurrence: US)
  Receive Date: 20211024
  Receipt Date: 20211024
  Transmission Date: 20220303
  Serious: Yes (Hospitalization)
  Sender: FDA-Public Use
  Company Number: None

PATIENT
  Age: 81 Year
  Sex: Male
  Weight: 64.8 kg

DRUGS (13)
  1. CAPECITABINE [Suspect]
     Active Substance: CAPECITABINE
     Indication: Colon cancer
     Route: 048
     Dates: start: 20211005
  2. LISINOPRIL [Concomitant]
     Active Substance: LISINOPRIL
  3. ZOFRAN [Concomitant]
     Active Substance: ONDANSETRON HYDROCHLORIDE
  4. MAGNESIUM OXIDE [Concomitant]
     Active Substance: MAGNESIUM OXIDE
  5. COLACE [Concomitant]
     Active Substance: DOCUSATE SODIUM
  6. DAILY VITAMIN WITH IRON [Concomitant]
  7. ELIQUIS [Concomitant]
     Active Substance: APIXABAN
  8. REGLAN [Concomitant]
     Active Substance: METOCLOPRAMIDE HYDROCHLORIDE
  9. SIMETHICONE (DIMETHICONE) [Concomitant]
     Active Substance: DIMETHICONE
  10. TRIAMCINOLONE ACETONIDE [Concomitant]
     Active Substance: TRIAMCINOLONE ACETONIDE
  11. METOPROLOL [Concomitant]
     Active Substance: METOPROLOL
  12. AMIODARONE [Concomitant]
     Active Substance: AMIODARONE
  13. TYLENOL [Concomitant]
     Active Substance: ACETAMINOPHEN

REACTIONS (2)
  - Hospitalisation [None]
  - Therapy interrupted [None]
